FAERS Safety Report 9399161 (Version 1)
Quarter: 2013Q3

REPORT INFORMATION
  Report Type: Report from Study
  Country: CA (occurrence: CA)
  Receive Date: 20130715
  Receipt Date: 20130715
  Transmission Date: 20140515
  Serious: Yes (Hospitalization, Other)
  Sender: FDA-Public Use
  Company Number: CA-BRISTOL-MYERS SQUIBB COMPANY-16710212

PATIENT
  Age: 64 Year
  Sex: Female

DRUGS (4)
  1. SAXAGLIPTIN [Suspect]
     Indication: TYPE 2 DIABETES MELLITUS
     Dosage: RESTARTED:21JUN2012.
     Dates: start: 20101026, end: 20120613
  2. NOVOMIX [Suspect]
     Indication: TYPE 2 DIABETES MELLITUS
  3. ASPIRIN [Concomitant]
  4. EZETIMIBE [Concomitant]

REACTIONS (1)
  - Renal failure chronic [Recovered/Resolved with Sequelae]
